FAERS Safety Report 6437192-9 (Version None)
Quarter: 2009Q4

REPORT INFORMATION
  Report Type: 
  Country: None (occurrence: None)
  Receive Date: 20091112
  Receipt Date: 20090731
  Transmission Date: 20100525
  Serious: No
  Sender: FDA-Public Use
  Company Number: A0793413A

PATIENT
  Age: 32 Year
  Sex: Female
  Weight: 61.8 kg

DRUGS (1)
  1. TREXIMET [Suspect]
     Indication: HEADACHE
     Dates: start: 20080811, end: 20081125

REACTIONS (3)
  - CHEST DISCOMFORT [None]
  - CHEST PAIN [None]
  - THROAT TIGHTNESS [None]
